FAERS Safety Report 8955573 (Version 1)
Quarter: 2012Q4

REPORT INFORMATION
  Report Type: Spontaneous
  Country: US (occurrence: None)
  Receive Date: 20121111
  Receipt Date: 20121111
  Transmission Date: 20130627
  Serious: Yes (Other)
  Sender: FDA-Public Use
  Company Number: USA/USA/12/0026823

PATIENT
  Age: 55 Year
  Sex: Male

DRUGS (1)
  1. MINOCYCLINE HYDROCHLORIDE [Suspect]
     Indication: VASCULITIS

REACTIONS (9)
  - Polyarteritis nodosa [None]
  - Pyrexia [None]
  - Chills [None]
  - Weight decreased [None]
  - Arthralgia [None]
  - Testicular pain [None]
  - Rectal haemorrhage [None]
  - Hypoaesthesia [None]
  - Antineutrophil cytoplasmic antibody positive [None]
